FAERS Safety Report 16927342 (Version 2)
Quarter: 2019Q4

REPORT INFORMATION
  Report Type: Spontaneous
  Country: None (occurrence: MZ)
  Receive Date: 20191016
  Receipt Date: 20191203
  Transmission Date: 20200122
  Serious: Yes (Other)
  Sender: FDA-Public Use
  Company Number: MZ-POPULATION COUNCIL, INC.-2075756

PATIENT
  Age: 19 Year
  Sex: Female
  Weight: 40 kg

DRUGS (1)
  1. JADELLE [Suspect]
     Active Substance: LEVONORGESTREL
     Route: 059
     Dates: start: 20190614, end: 20190930

REACTIONS (2)
  - Labelled drug-food interaction medication error [None]
  - Pregnancy with implant contraceptive [None]

NARRATIVE: CASE EVENT DATE: 201908
